FAERS Safety Report 9120406 (Version 1)
Quarter: 2013Q1

REPORT INFORMATION
  Report Type: Report from Study
  Country: US (occurrence: US)
  Receive Date: 20130226
  Receipt Date: 20130226
  Transmission Date: 20140127
  Serious: Yes (Death)
  Sender: FDA-Public Use
  Company Number: US-ROCHE-1191373

PATIENT
  Age: 65 Year
  Sex: Female
  Weight: 87.71 kg

DRUGS (9)
  1. RITUXIMAB [Suspect]
     Indication: DIFFUSE LARGE B-CELL LYMPHOMA
     Route: 065
     Dates: start: 20121016, end: 20121217
  2. CYCLOPHOSPHAMIDE [Suspect]
     Indication: DIFFUSE LARGE B-CELL LYMPHOMA
     Route: 065
     Dates: start: 20121016, end: 20121217
  3. DOXORUBICIN [Suspect]
     Indication: DIFFUSE LARGE B-CELL LYMPHOMA
     Route: 065
     Dates: start: 20121016, end: 20121217
  4. VINCRISTINE [Suspect]
     Indication: DIFFUSE LARGE B-CELL LYMPHOMA
     Route: 065
     Dates: start: 20121016, end: 20121217
  5. PREDNISONE [Suspect]
     Indication: LYMPHOMA
     Route: 065
  6. BORTEZOMIB [Suspect]
     Indication: LYMPHOMA
     Route: 065
     Dates: start: 20121016, end: 20121217
  7. FOLIC ACID [Concomitant]
  8. ZOFRAN [Concomitant]
  9. NEULASTA [Concomitant]
     Route: 065
     Dates: end: 20121221

REACTIONS (1)
  - Cardio-respiratory arrest [Fatal]
